FAERS Safety Report 8828031 (Version 1)
Quarter: 2012Q4

REPORT INFORMATION
  Report Type: 
  Country: BR (occurrence: BR)
  Receive Date: 20121008
  Receipt Date: 20121008
  Transmission Date: 20130627
  Serious: Yes (Other)
  Sender: FDA-Public Use
  Company Number: PHHY2012BR085062

PATIENT
  Age: 44 Year
  Sex: Male

DRUGS (2)
  1. IMATINIB [Suspect]
     Indication: CHRONIC MYELOID LEUKAEMIA
     Dosage: 400 mg, per day
  2. IMATINIB [Suspect]
     Dosage: 400 mg, per day
     Dates: start: 200604

REACTIONS (3)
  - Desmoid tumour [Unknown]
  - Paraesthesia [Unknown]
  - Hypoaesthesia [Unknown]
